FAERS Safety Report 15999553 (Version 1)
Quarter: 2019Q1

REPORT INFORMATION
  Report Type: Spontaneous
  Country: US (occurrence: US)
  Receive Date: 20190222
  Receipt Date: 20190222
  Transmission Date: 20190418
  Serious: Yes (Disabling, Other)
  Sender: FDA-Public Use
  Company Number: None

PATIENT
  Age: 24 Year
  Sex: Male
  Weight: 70.2 kg

DRUGS (1)
  1. FINASTERIDE. [Suspect]
     Active Substance: FINASTERIDE
     Indication: ALOPECIA
     Dosage: ?          QUANTITY:1 TABLET(S);?
     Route: 048
     Dates: start: 20181023, end: 20181023

REACTIONS (11)
  - Dissociation [None]
  - Testicular pain [None]
  - Depressed level of consciousness [None]
  - Thinking abnormal [None]
  - Restlessness [None]
  - Head discomfort [None]
  - Feeling abnormal [None]
  - Headache [None]
  - Loss of personal independence in daily activities [None]
  - Ocular discomfort [None]
  - Impaired quality of life [None]

NARRATIVE: CASE EVENT DATE: 20181023
